FAERS Safety Report 23691783 (Version 2)
Quarter: 2024Q3

REPORT INFORMATION
  Report Type: Spontaneous
  Country: CA (occurrence: None)
  Receive Date: 20240401
  Receipt Date: 20240715
  Transmission Date: 20241017
  Serious: Yes (Other)
  Sender: ORION
  Company Number: CA-PFIZER INC-202400074252

PATIENT
  Age: 59 Year
  Sex: Female

DRUGS (11)
  1. METHOTREXATE [Suspect]
     Active Substance: METHOTREXATE
     Indication: Rheumatoid arthritis
     Dates: start: 2022
  2. METHOTREXATE [Suspect]
     Active Substance: METHOTREXATE
     Dates: start: 2022
  3. ANAKINRA [Concomitant]
     Active Substance: ANAKINRA
  4. CORTICOSTEROID NOS [Concomitant]
     Active Substance: CORTICOSTEROID NOS
  5. COLCHICINE [Concomitant]
     Active Substance: COLCHICINE
  6. DEXILANT [Concomitant]
     Active Substance: DEXLANSOPRAZOLE
  7. FOLIC ACID [Concomitant]
     Active Substance: FOLIC ACID
  8. FOLIC ACID [Concomitant]
     Active Substance: FOLIC ACID
  9. INFLECTRA [Concomitant]
     Active Substance: INFLIXIMAB-DYYB
     Indication: Rheumatoid arthritis
     Dosage: 5 MG/KG,WEEK 0,2,6 THEN Q 6 WEEKS
     Dates: start: 20221006, end: 20221020
  10. INFLECTRA [Concomitant]
     Active Substance: INFLIXIMAB-DYYB
     Dosage: 5 MG/KG,WEEK 0,2,6 THEN Q 6 WEEKS
     Dates: start: 20221116, end: 20240515
  11. INFLECTRA [Concomitant]
     Active Substance: INFLIXIMAB-DYYB
     Dates: start: 20240612

REACTIONS (5)
  - Joint injection [Unknown]
  - Joint swelling [Unknown]
  - Rheumatoid arthritis [Recovering/Resolving]
  - Hyperglycaemia [Unknown]
  - Pain [Unknown]

NARRATIVE: CASE EVENT DATE: 20240201
